FAERS Safety Report 24190179 (Version 2)
Quarter: 2024Q3

REPORT INFORMATION
  Report Type: Spontaneous
  Country: US (occurrence: US)
  Receive Date: 20240808
  Receipt Date: 20240828
  Transmission Date: 20241017
  Serious: No
  Sender: PFIZER
  Company Number: US-PFIZER INC-202400229955

PATIENT
  Age: 53 Year
  Sex: Female
  Weight: 48.98 kg

DRUGS (1)
  1. PAXLOVID [Suspect]
     Active Substance: NIRMATRELVIR\RITONAVIR
     Indication: COVID-19 treatment
     Dosage: 400 MG, 2X/DAY, [2 (150MG) NIRMATRELVIR WITH 100 MG RITONAVIR 2X/DAY]
     Route: 048
     Dates: start: 20240801, end: 20240805

REACTIONS (4)
  - Feeling abnormal [Unknown]
  - Nausea [Recovered/Resolved]
  - Ageusia [Recovered/Resolved]
  - Malaise [Recovered/Resolved]

NARRATIVE: CASE EVENT DATE: 20240801
